FAERS Safety Report 5759850-1 (Version None)
Quarter: 2008Q2

REPORT INFORMATION
  Report Type: 
  Country: None (occurrence: None)
  Receive Date: 20080605
  Receipt Date: 20080523
  Transmission Date: 20081010
  Serious: Yes (Life-Threatening, Other)
  Sender: FDA-Public Use
  Company Number: PHHY2008ZA08641

PATIENT
  Age: 50 Year
  Sex: Male

DRUGS (8)
  1. TAREG [Suspect]
     Indication: HYPERTENSION
     Dosage: UNK
  2. TAREG [Suspect]
     Dosage: 80MG
     Dates: start: 20080520, end: 20080527
  3. TAREG [Suspect]
     Dosage: 160MG
     Dates: start: 20080523, end: 20080527
  4. LOSARTAN POTASSIUM [Suspect]
     Dosage: 1 IN MORNING, 1 AT NIGHT
  5. RIDAQ [Suspect]
  6. BETA BLOCKING AGENTS [Suspect]
  7. ACE INHIBITOR NOS [Suspect]
  8. OMEPRAZOLE [Concomitant]

REACTIONS (10)
  - BLOOD PRESSURE INCREASED [None]
  - CHEST PAIN [None]
  - COUGH [None]
  - FEELING ABNORMAL [None]
  - GOUT [None]
  - HEADACHE [None]
  - HEART RATE DECREASED [None]
  - HEART RATE INCREASED [None]
  - NASAL DISCOMFORT [None]
  - RHINORRHOEA [None]
